FAERS Safety Report 7177335-5 (Version None)
Quarter: 2010Q4

REPORT INFORMATION
  Report Type: 
  Country: None (occurrence: None)
  Receive Date: 20101216
  Receipt Date: 20101216
  Transmission Date: 20110411
  Serious: Yes (Other)
  Sender: FDA-Public Use
  Company Number: None

PATIENT

DRUGS (2)
  1. PROPOXYPHENE HCL AND ACETAMINOPHEN [Suspect]
     Indication: PAIN
     Dosage: QTY: 20 1 TO 2 EVERY 6HRS.
     Dates: start: 20101112
  2. PROPOXYPHENE HCL AND ACETAMINOPHEN [Suspect]
     Indication: PAIN
     Dosage: QTY: 20 1 TO 2 EVERY 6HRS.
     Dates: start: 20101126

REACTIONS (1)
  - CHEST PAIN [None]
